FAERS Safety Report 6237853-0 (Version None)
Quarter: 2009Q2

REPORT INFORMATION
  Report Type: 
  Country: None (occurrence: None)
  Receive Date: 20090617
  Receipt Date: 20090602
  Transmission Date: 20091009
  Serious: Yes (Death, Hospitalization)
  Sender: FDA-Public Use
  Company Number: 2009RR-24641

PATIENT
  Age: 61 Year
  Sex: Female

DRUGS (5)
  1. METFORMIN (METFORMIN) UNKNOWN [Suspect]
  2. GLICLAZIDE (GLICLAZIDE) [Concomitant]
  3. QUINAPRIL HCL [Concomitant]
  4. FUROSEMIDE [Concomitant]
  5. CANDESARTAN/HYDROCHLOROTHIAZIDE (CANDESARTAN/HYDROCHLOROTHIAZIDE) [Concomitant]

REACTIONS (6)
  - DEHYDRATION [None]
  - DIARRHOEA [None]
  - LACTIC ACIDOSIS [None]
  - RENAL FAILURE ACUTE [None]
  - SHOCK [None]
  - WRONG TECHNIQUE IN DRUG USAGE PROCESS [None]
